FAERS Safety Report 9817349 (Version 1)
Quarter: 2014Q1

REPORT INFORMATION
  Report Type: Report from Study
  Country: NO (occurrence: NO)
  Receive Date: 20140115
  Receipt Date: 20140115
  Transmission Date: 20141002
  Serious: Yes (Hospitalization)
  Sender: FDA-Public Use
  Company Number: NO-BIOGENIDEC-2014BI001777

PATIENT
  Age: 44 Year
  Sex: Female

DRUGS (5)
  1. TYSABRI [Suspect]
     Indication: RELAPSING-REMITTING MULTIPLE SCLEROSIS
     Route: 042
     Dates: start: 20080812
  2. IMOVANE [Concomitant]
     Indication: SLEEP DISORDER
     Dates: start: 20120101
  3. SOBRIL [Concomitant]
     Indication: ANXIETY
     Dates: start: 20111121
  4. SOBRIL [Concomitant]
     Indication: SLEEP DISORDER
     Dates: start: 20111121
  5. PARALGIN FORTE [Concomitant]
     Indication: SCIATICA
     Dates: start: 20111121

REACTIONS (1)
  - Intervertebral disc protrusion [Recovered/Resolved]
